FAERS Safety Report 8286832-0 (Version None)
Quarter: 2012Q2

REPORT INFORMATION
  Report Type: 
  Country: None (occurrence: None)
  Receive Date: 20120416
  Receipt Date: 20120403
  Transmission Date: 20120825
  Serious: Yes (Other)
  Sender: FDA-Public Use
  Company Number: US-ELI_LILLY_AND_COMPANY-US201204001403

PATIENT
  Sex: Female

DRUGS (3)
  1. BENADRYL [Concomitant]
  2. VITAMINS NOS [Concomitant]
  3. PROZAC [Suspect]
     Indication: BIPOLAR DISORDER
     Dosage: 20 MG, QD
     Dates: start: 19940101, end: 20000601

REACTIONS (7)
  - PREGNANCY [None]
  - MATERNAL EXPOSURE DURING PREGNANCY [None]
  - PYREXIA [None]
  - MUSCLE SPASMS [None]
  - PAIN [None]
  - HAEMORRHAGE [None]
  - ABORTION MISSED [None]
